FAERS Safety Report 7247481-6 (Version None)
Quarter: 2011Q1

REPORT INFORMATION
  Report Type: 
  Country: None (occurrence: None)
  Receive Date: 20110127
  Receipt Date: 20110119
  Transmission Date: 20110831
  Serious: Yes (Hospitalization)
  Sender: FDA-Public Use
  Company Number: BR-ROCHE-729133

PATIENT
  Sex: Female
  Weight: 78 kg

DRUGS (2)
  1. RIBAVIRIN [Concomitant]
  2. PEGINTERFERON ALFA-2A [Suspect]
     Indication: HEPATITIS C
     Route: 058
     Dates: start: 20091111

REACTIONS (9)
  - UTERINE HAEMORRHAGE [None]
  - APPLICATION SITE NODULE [None]
  - APPLICATION SITE ABSCESS [None]
  - ANAEMIA [None]
  - PYREXIA [None]
  - THROMBOCYTOPENIA [None]
  - ADVERSE DRUG REACTION [None]
  - GASTRIC DISORDER [None]
  - APPLICATION SITE ERYTHEMA [None]
